FAERS Safety Report 18601932 (Version 1)
Quarter: 2020Q4

REPORT INFORMATION
  Report Type: Report from Study
  Country: US (occurrence: US)
  Receive Date: 20201210
  Receipt Date: 20201210
  Transmission Date: 20210114
  Serious: No
  Sender: FDA-Public Use
  Company Number: NVSC2020US325312

PATIENT
  Age: 43 Year
  Sex: Male

DRUGS (2)
  1. LOSARTAN POTASSIUM. [Suspect]
     Active Substance: LOSARTAN POTASSIUM
     Indication: PRODUCT USED FOR UNKNOWN INDICATION
     Dosage: UNK
     Route: 065
     Dates: start: 20201201
  2. ENTRESTO [Suspect]
     Active Substance: SACUBITRIL\VALSARTAN
     Indication: CARDIAC FAILURE
     Dosage: 24.26 MG, BID (50 MG)
     Route: 048
     Dates: start: 20200911

REACTIONS (4)
  - Dyspnoea [Unknown]
  - Product dose omission issue [Not Recovered/Not Resolved]
  - Inappropriate schedule of product administration [Unknown]
  - Nausea [Unknown]

NARRATIVE: CASE EVENT DATE: 202011
